FAERS Safety Report 10023500 (Version 1)
Quarter: 2014Q1

REPORT INFORMATION
  Report Type: Spontaneous
  Country: US (occurrence: None)
  Receive Date: 20140319
  Receipt Date: 20140319
  Transmission Date: 20141002
  Serious: Yes (Other)
  Sender: FDA-Public Use
  Company Number: None

PATIENT
  Age: 45 Year
  Sex: Female
  Weight: 74.84 kg

DRUGS (5)
  1. SLO-NIACIN [Suspect]
     Indication: BLOOD CHOLESTEROL INCREASED
     Route: 048
     Dates: start: 20140226, end: 20140301
  2. MULTIVITAMIN [Concomitant]
  3. ZYRTEC-D [Concomitant]
  4. TYLENOL [Concomitant]
  5. IBUPROFEN [Concomitant]

REACTIONS (4)
  - Flushing [None]
  - Urticaria [None]
  - Chest discomfort [None]
  - Pruritus [None]
